FAERS Safety Report 4853744-1 (Version None)
Quarter: 2005Q4

REPORT INFORMATION
  Report Type: 
  Country: None (occurrence: None)
  Receive Date: 20051214
  Receipt Date: 20050805
  Transmission Date: 20060501
  Serious: Yes (Death)
  Sender: FDA-Public Use
  Company Number: PHHO2005VE12356

PATIENT
  Age: 88 Year
  Sex: Female

DRUGS (8)
  1. EXELON [Suspect]
     Indication: DEMENTIA
     Dates: start: 20030909
  2. ZYPREXA [Concomitant]
  3. ASPIRIN [Concomitant]
  4. APROVEL [Concomitant]
  5. DILANTIN KAPSEAL [Concomitant]
  6. NORVASC [Concomitant]
  7. MACRODANTIN [Concomitant]
  8. CATAFLAM [Concomitant]

REACTIONS (6)
  - ATRIAL FIBRILLATION [None]
  - CARDIAC FAILURE [None]
  - CARDIAC VALVE DISEASE [None]
  - DIARRHOEA [None]
  - DYSPEPSIA [None]
  - HYPERHIDROSIS [None]
